FAERS Safety Report 15027416 (Version 1)
Quarter: 2018Q2

REPORT INFORMATION
  Report Type: Spontaneous
  Country: CA (occurrence: CA)
  Receive Date: 20180619
  Receipt Date: 20180619
  Transmission Date: 20180711
  Serious: Yes (Other)
  Sender: FDA-Public Use
  Company Number: CA-ASTRAZENECA-2018SE62602

PATIENT
  Age: 546 Month
  Sex: Female
  Weight: 54.4 kg

DRUGS (2)
  1. SYMBICORT [Suspect]
     Active Substance: BUDESONIDE\FORMOTEROL FUMARATE DIHYDRATE
     Indication: ASTHMA
     Dosage: 200 MCG1-2 PUFFS BID
     Route: 055
     Dates: start: 201301
  2. SYMBICORT [Suspect]
     Active Substance: BUDESONIDE\FORMOTEROL FUMARATE DIHYDRATE
     Indication: ASTHMA
     Dosage: 200 MCG1-2 PUFFS BID
     Route: 055

REACTIONS (2)
  - Ill-defined disorder [Unknown]
  - Product taste abnormal [Recovering/Resolving]

NARRATIVE: CASE EVENT DATE: 20171221
